FAERS Safety Report 6033044-7 (Version None)
Quarter: 2009Q1

REPORT INFORMATION
  Report Type: 
  Country: None (occurrence: None)
  Receive Date: 20090109
  Receipt Date: 20090102
  Transmission Date: 20090719
  Serious: Yes (Other)
  Sender: FDA-Public Use
  Company Number: US-BAYER-200910022BCC

PATIENT
  Age: 11 Year
  Sex: Female
  Weight: 45 kg

DRUGS (1)
  1. ALEVE [Suspect]
     Indication: PAIN
     Dosage: TOTAL DAILY DOSE: 220 MG  UNIT DOSE: 220 MG
     Dates: start: 20090101

REACTIONS (6)
  - CHEST DISCOMFORT [None]
  - DYSPHAGIA [None]
  - EYELID OEDEMA [None]
  - HYPERSENSITIVITY [None]
  - SWELLING FACE [None]
  - VOMITING [None]
